FAERS Safety Report 20585296 (Version 1)
Quarter: 2022Q1

REPORT INFORMATION
  Report Type: Report from Study
  Country: US (occurrence: US)
  Receive Date: 20220312
  Receipt Date: 20220312
  Transmission Date: 20220423
  Serious: Yes (Life-Threatening, Hospitalization, Other)
  Sender: FDA-Public Use
  Company Number: US-AMGEN-USACT2022041535

PATIENT
  Age: 76 Year
  Sex: Male
  Weight: 75 kg

DRUGS (9)
  1. BLINATUMOMAB [Suspect]
     Active Substance: BLINATUMOMAB
     Indication: Acute lymphocytic leukaemia
     Dosage: 9 MICROGRAM PER DOSE (TOTAL DOSE 54 MICROGRAM)
     Route: 065
     Dates: start: 20220209, end: 20220215
  2. DASATINIB [Suspect]
     Active Substance: DASATINIB
     Indication: Acute lymphocytic leukaemia
     Dosage: UNK (TOTAL DOSE 120 MILLIGRAM)
     Route: 065
     Dates: start: 20220129, end: 20220214
  3. DEXAMETHASONE [Suspect]
     Active Substance: DEXAMETHASONE
     Indication: Acute lymphocytic leukaemia
     Dosage: UNK (TOTAL DOSE 68 MILLIGRAM)
     Route: 065
     Dates: start: 20220209, end: 20220217
  4. METHOTREXATE [Suspect]
     Active Substance: METHOTREXATE
     Indication: Acute lymphocytic leukaemia
     Route: 065
  5. ALPRAZOLAM [Concomitant]
     Active Substance: ALPRAZOLAM
  6. DAPTOMYCIN [Concomitant]
     Active Substance: DAPTOMYCIN
  7. MELATONIN [Concomitant]
     Active Substance: MELATONIN
  8. OXYCODONE [Concomitant]
     Active Substance: OXYCODONE
  9. CYTARABINE [Concomitant]
     Active Substance: CYTARABINE

REACTIONS (3)
  - Pulmonary oedema [Not Recovered/Not Resolved]
  - Confusional state [Not Recovered/Not Resolved]
  - Delirium [Recovered/Resolved]

NARRATIVE: CASE EVENT DATE: 20220215
